FAERS Safety Report 22050713 (Version 1)
Quarter: 2023Q1

REPORT INFORMATION
  Report Type: Report from Study
  Country: DE (occurrence: None)
  Receive Date: 20230301
  Receipt Date: 20230301
  Transmission Date: 20230418
  Serious: Yes (Hospitalization, Disabling, Other)
  Sender: FDA-Public Use
  Company Number: 2023A001987

PATIENT
  Age: 77 Year
  Sex: Male

DRUGS (7)
  1. DURVALUMAB [Suspect]
     Active Substance: DURVALUMAB
     Indication: Bladder cancer
     Dosage: 1500.0MG ONCE/SINGLE ADMINISTRATION
     Route: 042
     Dates: start: 20221213, end: 20221213
  2. TREMELIMUMAB [Suspect]
     Active Substance: TREMELIMUMAB
     Indication: Bladder cancer
     Dosage: 75.0MG ONCE/SINGLE ADMINISTRATION
     Route: 042
     Dates: start: 20221213, end: 20221213
  3. ENFORTUMAB VEDOTIN [Suspect]
     Active Substance: ENFORTUMAB VEDOTIN
     Indication: Bladder cancer
     Dosage: 1.25MG/KG ONCE/SINGLE ADMINISTRATION
     Route: 042
     Dates: start: 20221213, end: 20221213
  4. ENFORTUMAB VEDOTIN [Suspect]
     Active Substance: ENFORTUMAB VEDOTIN
     Indication: Bladder cancer
     Dosage: 1.25MG/KG ONCE/SINGLE ADMINISTRATION
     Route: 042
     Dates: start: 20221220, end: 20221220
  5. DEXERYL [Concomitant]
     Indication: Pruritus
     Dosage: 15.0% AS REQUIRED
     Route: 003
     Dates: start: 20221220
  6. NOBILIN PREMIUM [Concomitant]
     Indication: Nutritional supplementation
     Dosage: DAILY
     Route: 048
     Dates: start: 1997
  7. MCP [Concomitant]
     Active Substance: METOCLOPRAMIDE HYDROCHLORIDE
     Indication: Nausea
     Dosage: 1 MG/ML THREE TIMES A DAY AS NEEDED
     Route: 048
     Dates: start: 20221228

REACTIONS (1)
  - Drug-induced liver injury [Recovered/Resolved]

NARRATIVE: CASE EVENT DATE: 20230103
